FAERS Safety Report 18797415 (Version 5)
Quarter: 2021Q1

REPORT INFORMATION
  Report Type: Spontaneous
  Country: GB (occurrence: GB)
  Receive Date: 20210128
  Receipt Date: 20210317
  Transmission Date: 20210419
  Serious: Yes (Other)
  Sender: FDA-Public Use
  Company Number: GB-CIPLA LTD.-2021GB00521

PATIENT

DRUGS (10)
  1. PENTAMIDINE [Suspect]
     Active Substance: PENTAMIDINE
     Indication: PROPHYLAXIS
     Dosage: UNK
     Route: 065
     Dates: start: 20201028
  2. SODIUM CHLORIDE. [Suspect]
     Active Substance: SODIUM CHLORIDE
     Indication: MEDICATION DILUTION
     Dosage: UNK (1), MONTHLY (0.9 PERCENT) (QMO)
     Route: 042
     Dates: start: 20201028
  3. PENTAMIDINE ISETIONATE [Suspect]
     Active Substance: PENTAMIDINE ISETHIONATE
     Indication: NEUTROPENIA
     Dosage: 240 MILLIGRAM, EVERY MONTH
     Route: 065
     Dates: start: 20201028
  4. PENTAMIDINE [Suspect]
     Active Substance: PENTAMIDINE
     Indication: NEUTROPENIA
     Dosage: 1 DOSAGE FORM, MONTHLY (QMO)
     Route: 065
     Dates: start: 20201028
  5. SODIUM CHLORIDE. [Suspect]
     Active Substance: SODIUM CHLORIDE
     Dosage: UNK (1), MONTHLY (0.9 PERCENT) (QMO)
     Route: 042
     Dates: start: 20201028
  6. PENTAMIDINE ISETIONATE [Suspect]
     Active Substance: PENTAMIDINE ISETHIONATE
     Indication: ANTIFUNGAL PROPHYLAXIS
     Dosage: UNK
     Route: 065
  7. PENTAMIDINE ISETIONATE [Suspect]
     Active Substance: PENTAMIDINE ISETHIONATE
     Dosage: 240 MILLIGRAM, EVERY MONTH
     Route: 065
     Dates: start: 20201028
  8. VALGANCICLOVIR. [Suspect]
     Active Substance: VALGANCICLOVIR
     Indication: CYTOMEGALOVIRUS CHORIORETINITIS
     Dosage: 1800 MILLIGRAM, BID
     Route: 048
     Dates: start: 20200916
  9. PENTAMIDINE [Suspect]
     Active Substance: PENTAMIDINE
     Indication: ANTIFUNGAL PROPHYLAXIS
     Dosage: 1 DOSAGE FORM, MONTHLY (QMO)
     Route: 065
     Dates: start: 20201028
  10. TOLVAPTAN [Suspect]
     Active Substance: TOLVAPTAN
     Indication: HYPONATRAEMIA
     Dosage: 75 MILLIGRAM, QD
     Route: 048
     Dates: start: 20200218

REACTIONS (3)
  - Infusion site swelling [Recovered/Resolved]
  - Pruritus [Recovered/Resolved]
  - Infusion site erythema [Recovered/Resolved]

NARRATIVE: CASE EVENT DATE: 20201028
